FAERS Safety Report 18773001 (Version 2)
Quarter: 2021Q1

REPORT INFORMATION
  Report Type: Report from Study
  Country: AU (occurrence: AU)
  Receive Date: 20210122
  Receipt Date: 20210203
  Transmission Date: 20210419
  Serious: Yes (Hospitalization)
  Sender: FDA-Public Use
  Company Number: AU-CELGENEUS-AUS-20210103459

PATIENT
  Age: 74 Year
  Sex: Male
  Weight: 71 kg

DRUGS (24)
  1. OXYCODONE [Concomitant]
     Active Substance: OXYCODONE
     Indication: PAIN IN EXTREMITY
  2. ONDANSETRON [Concomitant]
     Active Substance: ONDANSETRON
     Indication: NAUSEA
     Dosage: 4 MG X PRN
     Route: 048
     Dates: start: 20200403
  3. DUTASTERIDE?LAMSULOSIN (DUODART 0.5MG?0.4MG)SR [Concomitant]
     Indication: BENIGN PROSTATIC HYPERPLASIA
     Dosage: 1 CAPSULE X 1 X 2 DAYS
     Route: 048
     Dates: start: 201507
  4. KB004 (MONOCLONCAL ANTIBODY EPHA3) ON CLINICAL TRIAL [Concomitant]
     Indication: MYELOFIBROSIS
     Dosage: 1 U
     Route: 065
     Dates: start: 201307, end: 201310
  5. PARACETAMOL MR [Concomitant]
     Indication: ARTHRALGIA
  6. TARGIN (OXYCODONE?NALOXONE) [Concomitant]
     Indication: ARTHRALGIA
  7. BIMATOPROST?TIMOLOL OPHTHALMIC (GANFORT 0.3/5 EYE DROPS) [Concomitant]
     Indication: GLAUCOMA
     Dosage: 1 DROP PER EYE X 1 X 24 HOURS
     Route: 047
     Dates: start: 2009, end: 20200806
  8. HYDROXYUREA. [Concomitant]
     Active Substance: HYDROXYUREA
     Indication: MYELOFIBROSIS
     Dosage: 500 MG
     Route: 065
     Dates: start: 200004, end: 2009
  9. DIAZEPAM. [Concomitant]
     Active Substance: DIAZEPAM
     Indication: ANXIETY
     Dosage: 5 MG X PRN
     Route: 048
     Dates: start: 20200403
  10. HYDREA [Concomitant]
     Active Substance: HYDROXYUREA
     Indication: MYELOFIBROSIS
     Dosage: 500 MG
     Route: 065
     Dates: start: 20170619, end: 201711
  11. METOCLOPRAMIDE. [Concomitant]
     Active Substance: METOCLOPRAMIDE
     Indication: NAUSEA
     Dosage: 10 MG X PRN
     Route: 048
     Dates: start: 201911
  12. LACTULOSE (3.34G/5ML) [Concomitant]
     Indication: CONSTIPATION
     Dosage: 20 ML X PRN
     Route: 048
     Dates: start: 20200403
  13. LOPERAMIDE [Concomitant]
     Active Substance: LOPERAMIDE
     Indication: PREMEDICATION
     Dosage: 2 MG X PRN
     Route: 048
     Dates: start: 20200307
  14. DOCUSATE?SENNA (50MG?8MG) [Concomitant]
     Indication: CONSTIPATION
     Dosage: 2 TABLET X PRN
     Route: 048
     Dates: start: 201711
  15. HYDREA [Concomitant]
     Active Substance: HYDROXYUREA
     Indication: MYELOFIBROSIS
     Dosage: 500 MG
     Route: 065
     Dates: start: 20180929, end: 2019
  16. TIMOPTOL EYE DROPS 0.25% [Concomitant]
     Indication: GLAUCOMA
     Dosage: 1 DROP PER EYE X 1 X 24 HOURS
     Route: 047
     Dates: start: 20201015
  17. FEDRATINIB [Suspect]
     Active Substance: FEDRATINIB
     Indication: MYELOFIBROSIS
     Dosage: 400 MG X 1 X 1 DAYS
     Route: 048
     Dates: start: 20200306, end: 20200428
  18. OXYCODONE [Concomitant]
     Active Substance: OXYCODONE
     Indication: BACK PAIN
     Dosage: 5 MG X PRN
     Route: 048
     Dates: start: 201711, end: 20200707
  19. OXYCODONE [Concomitant]
     Active Substance: OXYCODONE
     Indication: ARTHRALGIA
  20. PARACETAMOL MR [Concomitant]
     Indication: BACK PAIN
     Dosage: 1330 MG X 3 X 1 DAYS
     Route: 048
     Dates: start: 201711
  21. PARACETAMOL MR [Concomitant]
     Indication: PAIN IN EXTREMITY
  22. TARGIN (OXYCODONE?NALOXONE) [Concomitant]
     Indication: BACK PAIN
     Dosage: 40/20 MG X 2 X 1 DAYS
     Route: 048
     Dates: start: 20200923
  23. TARGIN (OXYCODONE?NALOXONE) [Concomitant]
     Indication: PAIN IN EXTREMITY
  24. MOVICOL ^MACROGOL 3350 13.125 G, NACL 350.7 MG, KCL 46.6 MG, NA BICARB [Concomitant]
     Indication: CONSTIPATION
     Dosage: 1 SACHET X PRN
     Route: 048
     Dates: start: 20200430

REACTIONS (1)
  - Abdominal pain [Recovered/Resolved]

NARRATIVE: CASE EVENT DATE: 20201217
